FAERS Safety Report 4651003-3 (Version None)
Quarter: 2005Q2

REPORT INFORMATION
  Report Type: 
  Country: None (occurrence: None)
  Receive Date: 20050429
  Receipt Date: 20050421
  Transmission Date: 20051028
  Serious: Yes (Hospitalization, Other)
  Sender: FDA-Public Use
  Company Number: 2005063345

PATIENT
  Sex: Female
  Weight: 68.0396 kg

DRUGS (4)
  1. LIPITOR [Suspect]
     Indication: BLOOD CHOLESTEROL INCREASED
     Dosage: 10 MG (10 MG, 1 IN 1 D), ORAL
     Route: 048
  2. IBUPROFEN [Concomitant]
  3. ACETAMINOPHEN [Concomitant]
  4. ALPRAZOLAM [Concomitant]

REACTIONS (11)
  - ABDOMINAL RIGIDITY [None]
  - BACK PAIN [None]
  - FALL [None]
  - FATIGUE [None]
  - FEELING ABNORMAL [None]
  - FLATULENCE [None]
  - HIP FRACTURE [None]
  - MOBILITY DECREASED [None]
  - MUSCLE SPASMS [None]
  - RENAL PAIN [None]
  - STOMACH DISCOMFORT [None]
